FAERS Safety Report 9443496 (Version 1)
Quarter: 2013Q3

REPORT INFORMATION
  Report Type: Spontaneous
  Country: ES (occurrence: ES)
  Receive Date: 20130806
  Receipt Date: 20130806
  Transmission Date: 20140515
  Serious: Yes (Other)
  Sender: FDA-Public Use
  Company Number: PHHY2011ES87345

PATIENT
  Age: 85 Year
  Sex: Female

DRUGS (2)
  1. PARACETAMOL [Suspect]
     Indication: OSTEOARTHRITIS
  2. CORTICOSTEROIDS [Concomitant]

REACTIONS (3)
  - Liver injury [Not Recovered/Not Resolved]
  - Thrombocytopenia [Not Recovered/Not Resolved]
  - Arthralgia [Not Recovered/Not Resolved]
